FAERS Safety Report 18134138 (Version 1)
Quarter: 2020Q3

REPORT INFORMATION
  Report Type: Spontaneous
  Country: US (occurrence: US)
  Receive Date: 20200807
  Receipt Date: 20200807
  Transmission Date: 20201103
  Serious: Yes (Hospitalization)
  Sender: FDA-Public Use
  Company Number: None

PATIENT
  Age: 76 Year
  Sex: Female

DRUGS (36)
  1. BACLOFEN. [Concomitant]
     Active Substance: BACLOFEN
  2. FLUOCIN ACET OIN [Concomitant]
  3. TRAZODONE [Concomitant]
     Active Substance: TRAZODONE HYDROCHLORIDE
  4. TRIAMCINOLON OIN [Concomitant]
  5. KETOROLAC [Concomitant]
     Active Substance: KETOROLAC TROMETHAMINE
  6. KRISTALOSE PAK [Concomitant]
  7. NIFEDIAC CC [Concomitant]
     Active Substance: NIFEDIPINE
  8. NIFEDIPINE. [Concomitant]
     Active Substance: NIFEDIPINE
  9. PANTOPRAZOLE [Concomitant]
     Active Substance: PANTOPRAZOLE
  10. VITAMIN D [Concomitant]
     Active Substance: VITAMIN D NOS
  11. FOLIC ACID. [Concomitant]
     Active Substance: FOLIC ACID
  12. LEXAPRO [Concomitant]
     Active Substance: ESCITALOPRAM OXALATE
  13. METHOTREXATE. [Concomitant]
     Active Substance: METHOTREXATE
  14. MIRTAZAPINE. [Concomitant]
     Active Substance: MIRTAZAPINE
  15. TRAMADOL HCL [Concomitant]
     Active Substance: TRAMADOL HYDROCHLORIDE
  16. VENLAFAXINE [Concomitant]
     Active Substance: VENLAFAXINE HYDROCHLORIDE
  17. XELJANZ [Suspect]
     Active Substance: TOFACITINIB CITRATE
     Indication: PRODUCT USED FOR UNKNOWN INDICATION
     Route: 048
  18. AMITIZA [Concomitant]
     Active Substance: LUBIPROSTONE
  19. CLOPIDOGREL [Concomitant]
     Active Substance: CLOPIDOGREL BISULFATE
  20. ROSUVASTATIN. [Concomitant]
     Active Substance: ROSUVASTATIN
  21. CEPHALEXIN. [Concomitant]
     Active Substance: CEPHALEXIN
  22. ISOSORB MONO [Concomitant]
     Active Substance: ISOSORBIDE MONONITRATE
  23. TORSEMIDE. [Concomitant]
     Active Substance: TORSEMIDE
  24. CLOBETASOL [Concomitant]
     Active Substance: CLOBETASOL
  25. DOXYCYCL HYC [Concomitant]
  26. WARFARIN [Concomitant]
     Active Substance: WARFARIN
  27. AMLODIPINE [Concomitant]
     Active Substance: AMLODIPINE BESYLATE
  28. HYDROCO/APAP [Concomitant]
     Active Substance: ACETAMINOPHEN\HYDROCODONE
  29. OXYCODONE AND ACETAMINOPHEN [Concomitant]
     Active Substance: ACETAMINOPHEN\OXYCODONE HYDROCHLORIDE
  30. PROPO?N/APAP [Concomitant]
  31. TRIAMCINOLON LOT [Concomitant]
  32. EZETIMBE [Concomitant]
     Active Substance: EZETIMIBE
  33. FEXOFENADINE [Concomitant]
     Active Substance: FEXOFENADINE HYDROCHLORIDE
  34. METOCLOPRAM [Concomitant]
     Active Substance: METOCLOPRAMIDE
  35. METOPROL SUC [Concomitant]
  36. OMEPRAZOLE. [Concomitant]
     Active Substance: OMEPRAZOLE

REACTIONS (2)
  - Condition aggravated [None]
  - Therapy interrupted [None]

NARRATIVE: CASE EVENT DATE: 20200801
